FAERS Safety Report 9727124 (Version 4)
Quarter: 2014Q1

REPORT INFORMATION
  Report Type: Report from Study
  Country: DE (occurrence: DE)
  Receive Date: 20131203
  Receipt Date: 20140227
  Transmission Date: 20141002
  Serious: Yes (Other)
  Sender: FDA-Public Use
  Company Number: PHHY2013DE140295

PATIENT
  Sex: Male

DRUGS (3)
  1. FTY 720 [Suspect]
     Indication: MULTIPLE SCLEROSIS
     Dosage: 0.5 MG, QD
     Route: 048
     Dates: start: 20110914
  2. PROVAS [Concomitant]
     Dosage: 80 MG, QD
     Dates: start: 2007
  3. FAMPYRA [Concomitant]
     Indication: GAIT DISTURBANCE
     Dosage: 2 DF, QD
     Route: 048
     Dates: start: 20120508

REACTIONS (1)
  - Basal cell carcinoma [Recovered/Resolved]
